FAERS Safety Report 11860482 (Version 2)
Quarter: 2017Q1

REPORT INFORMATION
  Report Type: Spontaneous
  Country: US (occurrence: US)
  Receive Date: 20151222
  Receipt Date: 20170224
  Transmission Date: 20170428
  Serious: Yes (Hospitalization, Other)
  Sender: FDA-Public Use
  Company Number: US-ELI_LILLY_AND_COMPANY-US200801006111

PATIENT
  Age: 49 Year
  Sex: Female
  Weight: 69.9 kg

DRUGS (10)
  1. CYMBALTA [Suspect]
     Active Substance: DULOXETINE HYDROCHLORIDE
     Dosage: 60 MG, QD
     Route: 065
     Dates: start: 20101005
  2. VALIUM [Concomitant]
     Active Substance: DIAZEPAM
     Dosage: 10 MG, UNKNOWN
     Route: 065
  3. CYMBALTA [Suspect]
     Active Substance: DULOXETINE HYDROCHLORIDE
     Indication: MAJOR DEPRESSION
     Dosage: 30 MG, DAILY (1/D)
     Route: 065
  4. LISINOPRIL. [Concomitant]
     Active Substance: LISINOPRIL
     Dosage: UNK, UNKNOWN
     Route: 065
  5. VYTORIN [Concomitant]
     Active Substance: EZETIMIBE\SIMVASTATIN
     Dosage: UNK, UNKNOWN
     Route: 065
  6. OXYCODONE [Concomitant]
     Active Substance: OXYCODONE
     Dosage: UNK, UNKNOWN
     Route: 065
  7. MORPHINE [Concomitant]
     Active Substance: MORPHINE
     Dosage: UNK, UNKNOWN
     Route: 065
  8. TALWIN [Concomitant]
     Active Substance: PENTAZOCINE LACTATE
     Dosage: UNK, UNKNOWN
     Route: 065
  9. PRISTIQ EXTENDED-RELEASE [Concomitant]
     Active Substance: DESVENLAFAXINE SUCCINATE
     Dosage: UNK, UNKNOWN
     Route: 065
  10. CYMBALTA [Suspect]
     Active Substance: DULOXETINE HYDROCHLORIDE
     Indication: ANXIETY DISORDER
     Dosage: 20 MG, DAILY (1/D)
     Route: 065
     Dates: end: 20080119

REACTIONS (32)
  - Suicidal ideation [Unknown]
  - Suicide attempt [Unknown]
  - Hyperhidrosis [Unknown]
  - Unresponsive to stimuli [Unknown]
  - Nightmare [Unknown]
  - Headache [Unknown]
  - Insomnia [Unknown]
  - General physical health deterioration [Unknown]
  - Affect lability [Unknown]
  - Sensory disturbance [Unknown]
  - Dizziness [Unknown]
  - Drug withdrawal syndrome [Unknown]
  - Sexual dysfunction [Unknown]
  - Restlessness [Unknown]
  - Hypotension [Unknown]
  - Fatigue [Unknown]
  - Diarrhoea [Unknown]
  - Anxiety [Unknown]
  - Night sweats [Unknown]
  - Intentional overdose [Unknown]
  - Pneumonia aspiration [Unknown]
  - Agitation [Unknown]
  - Nausea [Unknown]
  - Paraesthesia [Unknown]
  - Seizure [Unknown]
  - Pain [Unknown]
  - Decreased appetite [Unknown]
  - Vomiting [Unknown]
  - Irritability [Unknown]
  - Vertigo [Unknown]
  - Dysphoria [Unknown]
  - Mood altered [Unknown]

NARRATIVE: CASE EVENT DATE: 200801
